FAERS Safety Report 9192770 (Version 1)
Quarter: 2013Q1

REPORT INFORMATION
  Report Type: Spontaneous
  Country: US (occurrence: None)
  Receive Date: 20130325
  Receipt Date: 20130325
  Transmission Date: 20140127
  Serious: Yes (Death, Hospitalization)
  Sender: FDA-Public Use
  Company Number: None

PATIENT
  Sex: Male
  Weight: 99.3 kg

DRUGS (1)
  1. TEMOZOLOMIDE [Suspect]

REACTIONS (9)
  - Confusional state [None]
  - Convulsion [None]
  - Neutropenia [None]
  - Thrombocytopenia [None]
  - Staphylococcal infection [None]
  - Respiratory failure [None]
  - Renal failure acute [None]
  - Dialysis [None]
  - No therapeutic response [None]
